FAERS Safety Report 14548146 (Version 2)
Quarter: 2018Q1

REPORT INFORMATION
  Report Type: Spontaneous
  Country: JP (occurrence: JP)
  Receive Date: 20180219
  Receipt Date: 20180226
  Transmission Date: 20180509
  Serious: No
  Sender: FDA-Public Use
  Company Number: JP-BAYER-2018-007329

PATIENT
  Age: 71 Year
  Sex: Male
  Weight: 67.2 kg

DRUGS (10)
  1. NEXAVAR [Suspect]
     Active Substance: SORAFENIB
     Indication: HEPATOCELLULAR CARCINOMA
     Dosage: DAILY DOSE 400 MG
     Route: 048
  2. MEVALOTIN [Concomitant]
     Active Substance: PRAVASTATIN SODIUM
  3. LIVACT [Concomitant]
     Active Substance: AMINO ACIDS
  4. NIFEDIPINE. [Concomitant]
     Active Substance: NIFEDIPINE
  5. AZILSARTAN [Concomitant]
     Active Substance: AZILSARTAN KAMEDOXOMIL
  6. NEXAVAR [Suspect]
     Active Substance: SORAFENIB
     Indication: TRANSCATHETER ARTERIAL CHEMOEMBOLISATION
     Dosage: DAILY DOSE 800 MG
     Route: 048
     Dates: start: 20170502, end: 20170628
  7. JANUVIA [Concomitant]
     Active Substance: SITAGLIPTIN PHOSPHATE
  8. FUMARATE DISODIUM [Concomitant]
     Active Substance: DISODIUM FUMARATE
  9. URSODEOXYCHOLIC ACID [Concomitant]
     Active Substance: URSODIOL
  10. CARDENALIN [Concomitant]
     Active Substance: DOXAZOSIN MESYLATE

REACTIONS (3)
  - Decreased appetite [Recovered/Resolved]
  - Secondary hypertension [Recovered/Resolved]
  - Palmar-plantar erythrodysaesthesia syndrome [Recovered/Resolved]

NARRATIVE: CASE EVENT DATE: 20170507
